FAERS Safety Report 4359623-0 (Version None)
Quarter: 2004Q2

REPORT INFORMATION
  Report Type: 
  Country: None (occurrence: None)
  Receive Date: 20040514
  Receipt Date: 20040514
  Transmission Date: 20050107
  Serious: Yes (Other)
  Sender: FDA-Public Use
  Company Number: None

PATIENT
  Age: 73 Year
  Sex: Male
  Weight: 101.36 kg

DRUGS (2)
  1. RITUXIMAB [Suspect]
     Indication: LYMPHOMA
     Dosage: 820 MG TIMES 3 IV
     Route: 042
     Dates: start: 20040310, end: 20040310
  2. DILTIAZEM [Concomitant]

REACTIONS (1)
  - BACK PAIN [None]
